FAERS Safety Report 21694592 (Version 1)
Quarter: 2022Q4

REPORT INFORMATION
  Report Type: Spontaneous
  Country: IN (occurrence: IN)
  Receive Date: 20221207
  Receipt Date: 20221207
  Transmission Date: 20230113
  Serious: Yes (Death, Hospitalization)
  Sender: FDA-Public Use
  Company Number: IN-MYLANLABS-2022M1136842

PATIENT
  Age: 71 Year
  Sex: Female

DRUGS (4)
  1. DOXORUBICIN [Suspect]
     Active Substance: DOXORUBICIN
     Indication: Mucinous adenocarcinoma of appendix
     Dosage: UNK
     Route: 033
  2. DOXORUBICIN [Suspect]
     Active Substance: DOXORUBICIN
     Indication: Hyperthermic chemotherapy
  3. MITOMYCIN C [Suspect]
     Active Substance: MITOMYCIN
     Indication: Mucinous adenocarcinoma of appendix
     Dosage: UNK
     Route: 033
  4. MITOMYCIN C [Suspect]
     Active Substance: MITOMYCIN
     Indication: Hyperthermic chemotherapy

REACTIONS (5)
  - Hypotension [Fatal]
  - Acute kidney injury [Fatal]
  - Cardiac arrest [Fatal]
  - Shock [Unknown]
  - Anuria [Unknown]
